FAERS Safety Report 9399933 (Version 1)
Quarter: 2013Q3

REPORT INFORMATION
  Report Type: Spontaneous
  Country: US (occurrence: US)
  Receive Date: 20130715
  Receipt Date: 20130715
  Transmission Date: 20140515
  Serious: No
  Sender: FDA-Public Use
  Company Number: US-PFIZER INC-2013203176

PATIENT
  Age: 49 Year
  Sex: Male

DRUGS (1)
  1. INLYTA [Suspect]
     Indication: RENAL CANCER
     Dosage: 7 MG, 2X/DAY (ONE 5MG+TWO 1MG)
     Route: 048
     Dates: start: 20130510

REACTIONS (2)
  - Chromaturia [Unknown]
  - Skin discolouration [Unknown]
